FAERS Safety Report 7219464-3 (Version None)
Quarter: 2011Q1

REPORT INFORMATION
  Report Type: 
  Country: None (occurrence: None)
  Receive Date: 20110111
  Receipt Date: 20110103
  Transmission Date: 20110831
  Serious: Yes (Death)
  Sender: FDA-Public Use
  Company Number: CH-SANOFI-AVENTIS-2010SA073817

PATIENT
  Sex: Male
  Weight: 76 kg

DRUGS (5)
  1. LISINOPRIL [Concomitant]
     Route: 048
  2. ESOMEPRAZOLE [Concomitant]
     Route: 048
  3. SINTROM [Concomitant]
  4. MULTAQ [Suspect]
     Indication: ATRIAL FIBRILLATION
     Route: 048
     Dates: start: 20100305, end: 20100520
  5. SOTALOL HCL [Concomitant]

REACTIONS (1)
  - DEATH [None]
